FAERS Safety Report 8331201 (Version 3)
Quarter: 2016Q1

REPORT INFORMATION
  Report Type: Spontaneous
  Country: BR (occurrence: BR)
  Receive Date: 20120111
  Receipt Date: 20160209
  Transmission Date: 20160526
  Serious: Yes (Other)
  Sender: FDA-Public Use
  Company Number: BR-PFIZER INC-2012006692

PATIENT
  Sex: Female

DRUGS (2)
  1. TOFRANIL [Concomitant]
     Active Substance: IMIPRAMINE HYDROCHLORIDE
     Indication: DEPRESSION
     Dosage: UNK
     Dates: start: 1991
  2. FRONTAL [Suspect]
     Active Substance: ALPRAZOLAM
     Indication: DEPRESSION
     Dosage: 0.5 MG, 1X/DAY
     Route: 048
     Dates: start: 1991

REACTIONS (7)
  - Panic disorder [Recovering/Resolving]
  - Drug tolerance [Unknown]
  - Depression [Unknown]
  - Breast cancer [Unknown]
  - Drug ineffective [Unknown]
  - Drug dependence [Unknown]
  - Malaise [Unknown]

NARRATIVE: CASE EVENT DATE: 201001
